FAERS Safety Report 22685684 (Version 4)
Quarter: 2025Q1

REPORT INFORMATION
  Report Type: Report from Study
  Country: US (occurrence: US)
  Receive Date: 20230710
  Receipt Date: 20250110
  Transmission Date: 20250408
  Serious: Yes (Hospitalization)
  Sender: ROCHE
  Company Number: US-ROCHE-3383527

PATIENT

DRUGS (1)
  1. MYCOPHENOLATE MOFETIL [Suspect]
     Active Substance: MYCOPHENOLATE MOFETIL
     Indication: Crohn^s disease
     Route: 065

REACTIONS (17)
  - Off label use [Unknown]
  - Fungal skin infection [Unknown]
  - Nausea [Unknown]
  - Vomiting [Unknown]
  - Abdominal pain [Unknown]
  - Diarrhoea [Unknown]
  - Pneumonia [Unknown]
  - Supraventricular tachycardia [Unknown]
  - Headache [Unknown]
  - Upper respiratory tract infection [Unknown]
  - Herpes zoster [Unknown]
  - Fungal skin infection [Unknown]
  - Anaemia [Unknown]
  - Leukopenia [Unknown]
  - Pruritus [Unknown]
  - Gastrointestinal stoma complication [Unknown]
  - Migraine [Unknown]
